FAERS Safety Report 6339959-4 (Version None)
Quarter: 2009Q3

REPORT INFORMATION
  Report Type: 
  Country: None (occurrence: None)
  Receive Date: 20090903
  Receipt Date: 20090825
  Transmission Date: 20100115
  Serious: Yes (Hospitalization)
  Sender: FDA-Public Use
  Company Number: JP-MYLANLABS-2009S1015091

PATIENT
  Age: 81 Year
  Sex: Male

DRUGS (3)
  1. AZITHROMYCIN [Suspect]
     Indication: OTITIS MEDIA ACUTE
     Dosage: 500 MG/DAY
  2. VALSARTAN [Concomitant]
     Indication: HYPERTENSION
     Dosage: 80 MG/DAY
  3. NAFTOPIDIL [Concomitant]
     Indication: PROSTATOMEGALY
     Dosage: 75 MG/DAY

REACTIONS (1)
  - AGRANULOCYTOSIS [None]
